FAERS Safety Report 15701412 (Version 1)
Quarter: 2018Q4

REPORT INFORMATION
  Report Type: Spontaneous
  Country: IT (occurrence: IT)
  Receive Date: 20181207
  Receipt Date: 20181207
  Transmission Date: 20190205
  Serious: Yes (Death)
  Sender: FDA-Public Use
  Company Number: IT-TEVA-2018-IT-983014

PATIENT
  Age: 85 Year
  Sex: Female

DRUGS (2)
  1. LASIX [Suspect]
     Active Substance: FUROSEMIDE
     Indication: CARDIAC FAILURE
     Dosage: 50 MILLIGRAM DAILY;
     Route: 048
     Dates: start: 20060201
  2. ALLOPURINOL. [Suspect]
     Active Substance: ALLOPURINOL
     Indication: CHRONIC KIDNEY DISEASE
     Dosage: 150 MILLIGRAM DAILY;
     Route: 048
     Dates: start: 20070219, end: 20070407

REACTIONS (1)
  - Toxic epidermal necrolysis [Fatal]

NARRATIVE: CASE EVENT DATE: 20070403
